FAERS Safety Report 4578674-4 (Version None)
Quarter: 2005Q1

REPORT INFORMATION
  Report Type: 
  Country: None (occurrence: None)
  Receive Date: 20050207
  Receipt Date: 20050207
  Transmission Date: 20050727
  Serious: Yes (Hospitalization)
  Sender: FDA-Public Use
  Company Number: None

PATIENT
  Sex: Male
  Weight: 83.8 kg

DRUGS (2)
  1. ENALAPRIL MALEATE [Suspect]
     Indication: HYPERTENSION
     Dosage: 20 MG  Q12H  ORAL
     Route: 048
     Dates: start: 20000101, end: 20050202
  2. MAXZIDE [Suspect]
     Indication: HYPERTENSION
     Dosage: 75/50 MG Q DAY ORAL
     Route: 048
     Dates: start: 20000101, end: 20050202

REACTIONS (3)
  - BRADYCARDIA [None]
  - HYPERKALAEMIA [None]
  - NODAL RHYTHM [None]
